FAERS Safety Report 5860886-0 (Version None)
Quarter: 2008Q3

REPORT INFORMATION
  Report Type: 
  Country: None (occurrence: None)
  Receive Date: 20080827
  Receipt Date: 20071219
  Transmission Date: 20090109
  Serious: No
  Sender: FDA-Public Use
  Company Number: US-ABBOTT-07P-163-0431252-00

PATIENT
  Sex: Male
  Weight: 78.088 kg

DRUGS (7)
  1. NIASPAN [Suspect]
     Indication: HIGH DENSITY LIPOPROTEIN DECREASED
     Route: 048
     Dates: start: 20070701, end: 20071101
  2. NIASPAN [Suspect]
     Route: 048
     Dates: start: 20071101, end: 20071218
  3. NIASPAN [Suspect]
     Route: 048
     Dates: start: 20071218
  4. INEGY [Concomitant]
     Indication: BLOOD CHOLESTEROL INCREASED
     Route: 048
  5. ASPIRIN [Concomitant]
     Indication: DRUG USE FOR UNKNOWN INDICATION
     Route: 048
     Dates: start: 19970101
  6. ATENOLOL [Concomitant]
     Indication: DRUG USE FOR UNKNOWN INDICATION
     Route: 048
  7. MULTI-VITAMIN [Concomitant]
     Indication: DRUG USE FOR UNKNOWN INDICATION
     Route: 048

REACTIONS (4)
  - EYE DISORDER [None]
  - EYE HAEMORRHAGE [None]
  - EYE SWELLING [None]
  - OCULAR HYPERAEMIA [None]
